FAERS Safety Report 8449825 (Version 4)
Quarter: 2012Q4

REPORT INFORMATION
  Report Type: 
  Country: US (occurrence: US)
  Receive Date: 20120309
  Receipt Date: 20121128
  Transmission Date: 20130627
  Serious: Yes (Other)
  Sender: FDA-Public Use
  Company Number: US-PFIZER INC-2012059951

PATIENT
  Age: 59 Year
  Sex: Female
  Weight: 90.7 kg

DRUGS (7)
  1. LYRICA [Suspect]
     Indication: FIBROMYALGIA
     Dosage: UNK
  2. LYRICA [Suspect]
     Dosage: 225 mg, 2x/day
     Route: 048
     Dates: start: 2010, end: 20121001
  3. LYRICA [Suspect]
     Dosage: UNK
     Dates: start: 20121107, end: 20121107
  4. ATENOLOL [Concomitant]
     Dosage: UNK
  5. HERBS [Concomitant]
     Dosage: UNK
  6. HYTRIN [Concomitant]
     Dosage: UNK
  7. MORPHINE [Concomitant]
     Dosage: UNK

REACTIONS (4)
  - Blood cholesterol decreased [Unknown]
  - Anaemia [Unknown]
  - Withdrawal syndrome [Unknown]
  - Malaise [Unknown]
